FAERS Safety Report 4898642-2 (Version None)
Quarter: 2006Q1

REPORT INFORMATION
  Report Type: 
  Country: None (occurrence: None)
  Receive Date: 20060130
  Receipt Date: 20060116
  Transmission Date: 20060701
  Serious: Yes (Death)
  Sender: FDA-Public Use
  Company Number: HQWYE368416JAN06

PATIENT
  Age: 73 Year
  Sex: Male

DRUGS (10)
  1. CORDARONE [Suspect]
     Dosage: 200 MG 1X  PER 1 DAY,  ORAL
     Route: 048
     Dates: start: 20041001, end: 20051119
  2. KLACID (CLARITHROMYCIN, ) [Suspect]
     Indication: BRONCHITIS ACUTE
     Dosage: 500 MG 2X PER 1 DAY, ORAL
     Route: 048
     Dates: start: 20051104, end: 20051115
  3. SINVACOR (SIMVASTATIN, ) [Suspect]
     Indication: MYOCARDIAL ISCHAEMIA
     Dosage: 20 MG 1X PER 1 DAY, ORAL
     Route: 048
     Dates: start: 20041001, end: 20051119
  4. ERYTHROPOIETIN (ERYTHROPOIETIN)) [Concomitant]
  5. CALCIUM CARBONATE (CALCIUM CARBONATE) [Concomitant]
  6. CLONIDINE [Concomitant]
  7. ISOSORBIDE MONONITRATE [Concomitant]
  8. MANIDIPINE (MANIDIPINE) [Concomitant]
  9. FUROSEMIDE [Concomitant]
  10. ACETYLSALICYLIC ACID SRT [Concomitant]

REACTIONS (3)
  - CONDITION AGGRAVATED [None]
  - RENAL FAILURE CHRONIC [None]
  - RHABDOMYOLYSIS [None]
